FAERS Safety Report 24876701 (Version 3)
Quarter: 2025Q1

REPORT INFORMATION
  Report Type: Spontaneous
  Country: US (occurrence: US)
  Receive Date: 20250123
  Receipt Date: 20250204
  Transmission Date: 20250409
  Serious: Yes (Hospitalization)
  Sender: KARYOPHARM THERAPEUTICS
  Company Number: US-KARYOPHARM-2025KPT000076

PATIENT

DRUGS (1)
  1. XPOVIO [Suspect]
     Active Substance: SELINEXOR
     Indication: Plasma cell myeloma refractory
     Dosage: 40 MG, WEEKLY
     Route: 048
     Dates: start: 202501

REACTIONS (2)
  - Illness [Unknown]
  - Malaise [Unknown]

NARRATIVE: CASE EVENT DATE: 20250101
